FAERS Safety Report 4690993-X (Version None)
Quarter: 2005Q2

REPORT INFORMATION
  Report Type: 
  Country: None (occurrence: None)
  Receive Date: 20050610
  Receipt Date: 20050531
  Transmission Date: 20051028
  Serious: Yes (Hospitalization)
  Sender: FDA-Public Use
  Company Number: 2005083255

PATIENT
  Age: 65 Year
  Sex: Male

DRUGS (4)
  1. NIFEDIPINE [Suspect]
     Dosage: ORAL
     Route: 048
  2. OMEPRAZOLE [Suspect]
  3. DISTALGESIC (DEXTROPROPOXYPHENE HYDROCHLORIDE, PARACETAMOL) [Suspect]
     Dosage: ORAL
     Route: 048
  4. STILNOCT            (ZOLPIDEM TARTRATE) [Suspect]
     Dosage: ORAL
     Route: 048

REACTIONS (5)
  - DEPRESSION [None]
  - DRUG TOXICITY [None]
  - INTENTIONAL MISUSE [None]
  - OVERDOSE [None]
  - SUICIDE ATTEMPT [None]
